FAERS Safety Report 7204304-9 (Version None)
Quarter: 2010Q4

REPORT INFORMATION
  Report Type: 
  Country: None (occurrence: None)
  Receive Date: 20101220
  Receipt Date: 20101213
  Transmission Date: 20110411
  Serious: Yes (Life-Threatening)
  Sender: FDA-Public Use
  Company Number: 779337

PATIENT
  Age: 37 Year
  Sex: Female

DRUGS (4)
  1. FENTANYL CITRATE [Suspect]
     Indication: ANAESTHESIA
     Dosage: .3 MILLIGRAM(S), INTRAVENOUS (NOT OTHERWISE SPECIFIED)
     Route: 042
     Dates: start: 20101119
  2. THIOPENTAL SODIUM [Suspect]
     Indication: ANAESTHESIA
     Dosage: 550 MG MILLIGRAM(S), INTRAVENOUS (NOT OTHERWISE SPECIFIED)
     Route: 042
     Dates: start: 20101119
  3. (CURACIT) [Suspect]
     Indication: ANAESTHESIA
     Dosage: 130 MG MILLIGRAM(S), INTRAVENOUS
     Route: 042
     Dates: start: 20101119, end: 20101119
  4. FLAGYL [Concomitant]

REACTIONS (3)
  - HYPOTENSION [None]
  - OXYGEN SATURATION DECREASED [None]
  - TACHYCARDIA [None]
